FAERS Safety Report 7991995-8 (Version None)
Quarter: 2011Q4

REPORT INFORMATION
  Report Type: 
  Country: None (occurrence: None)
  Receive Date: 20111219
  Receipt Date: 20110510
  Transmission Date: 20120403
  Serious: No
  Sender: FDA-Public Use
  Company Number: US-ASTRAZENECA-2011SE27908

PATIENT
  Age: 56 Year
  Weight: 115.7 kg

DRUGS (6)
  1. VASOPRIL [Concomitant]
     Indication: HYPERTENSION
  2. ASPIRIN [Concomitant]
  3. M.V.I. [Concomitant]
  4. ACAI BERRY [Concomitant]
  5. CRESTOR [Suspect]
     Route: 048
  6. FISH OIL [Concomitant]

REACTIONS (4)
  - BACK PAIN [None]
  - ADVERSE DRUG REACTION [None]
  - MYALGIA [None]
  - MUSCULOSKELETAL STIFFNESS [None]
